FAERS Safety Report 17440111 (Version 1)
Quarter: 2020Q1

REPORT INFORMATION
  Report Type: Spontaneous
  Country: US (occurrence: US)
  Receive Date: 20200219
  Receipt Date: 20200219
  Transmission Date: 20200409
  Serious: Yes (Disabling)
  Sender: FDA-Public Use
  Company Number: None

PATIENT
  Age: 27 Year
  Sex: Female
  Weight: 81.65 kg

DRUGS (5)
  1. PROPANALOL [Concomitant]
  2. METHAMAZOLE [Concomitant]
  3. TOPIRAMATE. [Concomitant]
     Active Substance: TOPIRAMATE
  4. RIZTRIPTIN [Concomitant]
  5. SKYLA [Suspect]
     Active Substance: LEVONORGESTREL
     Dates: start: 20180702, end: 20200205

REACTIONS (3)
  - Migraine [None]
  - Complication associated with device [None]
  - Uterine pain [None]

NARRATIVE: CASE EVENT DATE: 20190901
